FAERS Safety Report 10389943 (Version 7)
Quarter: 2015Q3

REPORT INFORMATION
  Report Type: Report from Study
  Country: IT (occurrence: IT)
  Receive Date: 20140818
  Receipt Date: 20150708
  Transmission Date: 20151125
  Serious: Yes (Other)
  Sender: FDA-Public Use
  Company Number: IT-ROCHE-1450828

PATIENT
  Age: 61 Year
  Sex: Male

DRUGS (2)
  1. HEPARIN [Suspect]
     Active Substance: HEPARIN SODIUM
     Indication: ANTICOAGULANT THERAPY
     Route: 042
  2. ALTEPLASE [Suspect]
     Active Substance: ALTEPLASE
     Indication: THROMBOSIS IN DEVICE
     Dosage: 30-50 MG CONTINUOUSLY INFUSED INTO THE LEFT VENTRICLE THROUGH A PIGTAIL CATHETER AT A RATE OF 1 MG/M
     Route: 016

REACTIONS (7)
  - Haemoglobinuria [Unknown]
  - Acute kidney injury [Unknown]
  - Product use issue [Unknown]
  - Cardiac failure [Unknown]
  - Vascular pseudoaneurysm [Unknown]
  - Thrombosis in device [Unknown]
  - Haematuria [Unknown]
